FAERS Safety Report 13551709 (Version 1)
Quarter: 2017Q2

REPORT INFORMATION
  Report Type: Spontaneous
  Country: PT (occurrence: PT)
  Receive Date: 20170516
  Receipt Date: 20170516
  Transmission Date: 20170830
  Serious: Yes (Death, Other)
  Sender: FDA-Public Use
  Company Number: PT-MYLANLABS-2017M1029449

PATIENT

DRUGS (1)
  1. MERCAPTAMINE [Suspect]
     Active Substance: CYSTEAMINE
     Indication: CYSTINOSIS
     Dosage: UNK
     Route: 048

REACTIONS (1)
  - Death [Fatal]
